FAERS Safety Report 10247799 (Version 1)
Quarter: 2014Q2

REPORT INFORMATION
  Report Type: Spontaneous
  Country: US (occurrence: US)
  Receive Date: 20140619
  Receipt Date: 20140619
  Transmission Date: 20141212
  Serious: No
  Sender: FDA-Public Use
  Company Number: US-BAYER-2014-082557

PATIENT
  Age: 80 Year
  Sex: Female
  Weight: 78 kg

DRUGS (11)
  1. BAYER ASPIRIN REGIMEN REGULAR 325 MG STRENGTH [Suspect]
     Indication: BACK PAIN
     Dosage: 1-6 DF, PRN
     Route: 048
  2. BAYER ASPIRIN REGIMEN REGULAR 325 MG STRENGTH [Suspect]
     Indication: ISCHAEMIC HEART DISEASE PROPHYLAXIS
  3. BAYER GENUINE ASPIRIN ORIGINAL STRENGTH [Suspect]
     Indication: ARTHRALGIA
     Dosage: 2 DF, PRN
     Route: 048
  4. BAYER GENUINE ASPIRIN ORIGINAL STRENGTH [Suspect]
     Indication: ARTHRALGIA
  5. ALEVE CAPLET [Suspect]
     Indication: BACK PAIN
     Dosage: 1 DF, QD
     Route: 048
     Dates: start: 2013, end: 2013
  6. ALEVE CAPLET [Suspect]
     Indication: ARTHRALGIA
  7. SIMVASTATIN [Concomitant]
  8. LORATADINE [Concomitant]
  9. ALLEGRA [Concomitant]
  10. SYNTHROID [Concomitant]
  11. ONE-A-DAY [MINERALS NOS,VITAMINS NOS] [Concomitant]
     Dosage: 1 DF, QD WITH FOOD
     Route: 048

REACTIONS (4)
  - Incorrect drug administration duration [None]
  - Drug ineffective [None]
  - Drug ineffective [None]
  - Drug ineffective [None]
